FAERS Safety Report 9622606 (Version 2)
Quarter: 2014Q2

REPORT INFORMATION
  Report Type: Spontaneous
  Country: GB (occurrence: GB)
  Receive Date: 20131015
  Receipt Date: 20140410
  Transmission Date: 20141212
  Serious: Yes (Other)
  Sender: FDA-Public Use
  Company Number: PHHY2013GB113792

PATIENT
  Sex: Male
  Weight: 85 kg

DRUGS (17)
  1. BISOPROLOL FUMARATE SANDOZ [Suspect]
     Indication: MYOCARDIAL ISCHAEMIA
     Dosage: 2.5 MG, UNK
     Route: 048
     Dates: start: 20130926
  2. BISOPROLOL FUMARATE SANDOZ [Suspect]
     Indication: CARDIAC FAILURE
  3. BISOPROLOL FUMARATE SANDOZ [Suspect]
     Indication: HYPERTENSION
  4. ASPIRIN [Concomitant]
     Indication: MYOCARDIAL ISCHAEMIA
     Dosage: 75 MG, QD
  5. FUROSEMIDE [Concomitant]
     Indication: MYOCARDIAL ISCHAEMIA
  6. FUROSEMIDE [Concomitant]
     Indication: BLOOD PRESSURE
  7. FUROSEMIDE [Concomitant]
     Indication: CARDIAC FAILURE CONGESTIVE
  8. SIMVASTATIN [Concomitant]
     Indication: MYOCARDIAL ISCHAEMIA
     Dosage: 40 MG, UNK
  9. RAMIPRIL [Concomitant]
     Indication: MYOCARDIAL ISCHAEMIA
     Dosage: 5 MG, UNK
  10. RAMIPRIL [Concomitant]
     Indication: BLOOD PRESSURE
  11. RAMIPRIL [Concomitant]
     Indication: CARDIAC FAILURE CONGESTIVE
  12. MOMETASONE FUROATE [Concomitant]
     Indication: RHINITIS
     Dosage: 1 DF, BID
  13. GLYCERYL TRINITRATE [Concomitant]
     Indication: ARTHRALGIA
     Dosage: 1 DF, PRN
  14. GLYCERYL TRINITRATE [Concomitant]
     Indication: MYOCARDIAL ISCHAEMIA
  15. CARDICOR [Concomitant]
     Indication: MYOCARDIAL ISCHAEMIA
     Dosage: 2.5 MG, UNK
  16. CARDICOR [Concomitant]
     Indication: BLOOD PRESSURE
  17. CARDICOR [Concomitant]
     Indication: CARDIAC FAILURE CONGESTIVE

REACTIONS (1)
  - Nightmare [Recovered/Resolved]
